FAERS Safety Report 5171174-2 (Version None)
Quarter: 2006Q4

REPORT INFORMATION
  Report Type: 
  Country: None (occurrence: None)
  Receive Date: 20061208
  Receipt Date: 20061208
  Transmission Date: 20070319
  Serious: Yes (Hospitalization)
  Sender: FDA-Public Use
  Company Number: None

PATIENT
  Age: 42 Year
  Sex: Male
  Weight: 84.8226 kg

DRUGS (2)
  1. LISINOPRIL [Suspect]
     Indication: DIABETES MELLITUS NON-INSULIN-DEPENDENT
     Dosage: 40MG, QDAY, PO
     Route: 048
     Dates: start: 20060524, end: 20060906
  2. LISINOPRIL [Suspect]
     Indication: HYPERTENSION
     Dosage: 40MG, QDAY, PO
     Route: 048
     Dates: start: 20060524, end: 20060906

REACTIONS (4)
  - ANGIONEUROTIC OEDEMA [None]
  - FOLLICULITIS [None]
  - INGROWN HAIR [None]
  - LIP SWELLING [None]
